FAERS Safety Report 11876560 (Version 1)
Quarter: 2015Q4

REPORT INFORMATION
  Report Type: Spontaneous
  Country: DE (occurrence: DE)
  Receive Date: 20151229
  Receipt Date: 20151229
  Transmission Date: 20160305
  Serious: Yes (Other)
  Sender: FDA-Public Use
  Company Number: DE-BIOGEN-2014BI110778

PATIENT
  Sex: Female

DRUGS (2)
  1. TYSABRI [Suspect]
     Active Substance: NATALIZUMAB
     Indication: MULTIPLE SCLEROSIS
     Route: 042
     Dates: start: 20071010, end: 200807
  2. TYSABRI [Interacting]
     Active Substance: NATALIZUMAB
     Route: 042
     Dates: start: 20100301, end: 201409

REACTIONS (1)
  - Progressive multifocal leukoencephalopathy [Unknown]
